FAERS Safety Report 7909567-X (Version None)
Quarter: 2011Q4

REPORT INFORMATION
  Report Type: 
  Country: None (occurrence: None)
  Receive Date: 20111111
  Receipt Date: 20111021
  Transmission Date: 20120403
  Serious: No
  Sender: FDA-Public Use
  Company Number: US-ROXANE LABORATORIES, INC.-2011-RO-01585RO

PATIENT
  Sex: Female

DRUGS (7)
  1. FLUTICASONE PROPIONATE [Suspect]
     Indication: EAR CONGESTION
     Route: 045
     Dates: start: 20110902
  2. COUMADIN [Concomitant]
  3. BACTRIM [Concomitant]
  4. VITAMIN TAB [Concomitant]
  5. FLUTICASONE PROPIONATE [Suspect]
     Indication: SINUS CONGESTION
  6. IMURAN [Concomitant]
  7. LORATADINE [Concomitant]

REACTIONS (1)
  - DRUG INEFFECTIVE [None]
